FAERS Safety Report 5549293-8 (Version None)
Quarter: 2007Q4

REPORT INFORMATION
  Report Type: 
  Country: None (occurrence: None)
  Receive Date: 20071211
  Receipt Date: 20071119
  Transmission Date: 20080405
  Serious: Yes (Hospitalization)
  Sender: FDA-Public Use
  Company Number: TR-ELI_LILLY_AND_COMPANY-TR200712001209

PATIENT
  Age: 57 Year
  Sex: Female

DRUGS (5)
  1. HUMALOG MIX 75/25 [Suspect]
     Indication: TYPE 2 DIABETES MELLITUS
     Dosage: 12 IU, DAILY (1/D)
     Route: 058
     Dates: start: 20070101
  2. HUMALOG MIX 75/25 [Suspect]
     Dosage: 8 IU, DAILY (1/D)
     Route: 058
     Dates: start: 20070101
  3. HUMALOG MIX 75/25 [Suspect]
     Dosage: 20 IU, DAILY (1/D)
     Route: 058
     Dates: start: 20070101
  4. HUMALOG MIX 75/25 [Suspect]
     Dosage: 12 IU, DAILY (1/D)
     Route: 058
     Dates: start: 20070101
  5. ANTIHYPERTENSIVES [Concomitant]
     Indication: HYPERTENSION

REACTIONS (3)
  - BLOOD GLUCOSE INCREASED [None]
  - INCORRECT DOSE ADMINISTERED [None]
  - PNEUMONITIS [None]
